FAERS Safety Report 5225861-8 (Version None)
Quarter: 2007Q1

REPORT INFORMATION
  Report Type: 
  Country: None (occurrence: None)
  Receive Date: 20070201
  Receipt Date: 20070122
  Transmission Date: 20070707
  Serious: Yes (Death)
  Sender: FDA-Public Use
  Company Number: DEWYE082409JAN07

PATIENT
  Sex: Female

DRUGS (3)
  1. VENLAFAXINE HCL [Suspect]
     Indication: ANXIETY DISORDER
     Route: 064
     Dates: start: 20030718
  2. VENLAFAXINE HCL [Suspect]
     Indication: PANIC DISORDER
  3. VENLAFAXINE HCL [Suspect]
     Indication: DEPRESSION

REACTIONS (1)
  - UMBILICAL CORD AROUND NECK [None]
